FAERS Safety Report 8797672 (Version 1)
Quarter: 2012Q4

REPORT INFORMATION
  Report Type: 
  Country: US (occurrence: US)
  Receive Date: 20120920
  Receipt Date: 20120920
  Transmission Date: 20130627
  Serious: Yes (Death)
  Sender: FDA-Public Use
  Company Number: PHEH2012US018296

PATIENT
  Sex: Male

DRUGS (1)
  1. AFINITOR [Suspect]
     Indication: PANCREATIC CARCINOMA
     Route: 048

REACTIONS (4)
  - Death [Fatal]
  - Feeling abnormal [Unknown]
  - Neoplasm progression [Unknown]
  - Malignant neoplasm progression [Unknown]
